FAERS Safety Report 9353586 (Version 2)
Quarter: 2013Q3

REPORT INFORMATION
  Report Type: Spontaneous
  Country: US (occurrence: US)
  Receive Date: 20130618
  Receipt Date: 20130718
  Transmission Date: 20140515
  Serious: No
  Sender: FDA-Public Use
  Company Number: US-PFIZER INC-2013181137

PATIENT
  Age: 49 Year
  Sex: Male
  Weight: 158.73 kg

DRUGS (2)
  1. CELEBREX [Suspect]
     Indication: ARTHRITIS
     Dosage: UNK
  2. LISINOPRIL W/HYDROCHLOROTHIAZIDE [Concomitant]
     Indication: HYPERTENSION
     Dosage: 20MG/25 MG

REACTIONS (1)
  - Drug ineffective [Unknown]
